FAERS Safety Report 24607329 (Version 1)
Quarter: 2024Q4

REPORT INFORMATION
  Report Type: Spontaneous
  Country: US (occurrence: US)
  Receive Date: 20241112
  Receipt Date: 20241112
  Transmission Date: 20250114
  Serious: Yes (Hospitalization, Other)
  Sender: COOPERSURGICAL
  Company Number: US-COOPERSURGICAL, INC.-2024CPS003347

PATIENT
  Age: 33 Year
  Sex: Female
  Weight: 88.435 kg

DRUGS (2)
  1. PARAGARD T 380A [Suspect]
     Active Substance: COPPER
     Indication: Contraception
     Dosage: UNK
     Route: 015
     Dates: start: 20131209, end: 20210128
  2. LISINOPRIL [Concomitant]
     Active Substance: LISINOPRIL
     Dosage: UNK
     Dates: start: 201310

REACTIONS (12)
  - COVID-19 pneumonia [Unknown]
  - Device breakage [Recovered/Resolved]
  - Foreign body in reproductive tract [Recovered/Resolved]
  - Complication of device removal [Recovered/Resolved]
  - Infection [Unknown]
  - COVID-19 [Unknown]
  - Stress [Not Recovered/Not Resolved]
  - Abnormal uterine bleeding [Unknown]
  - Muscle spasms [Recovered/Resolved]
  - Pelvic pain [Recovered/Resolved]
  - Pyrexia [Unknown]
  - Hypersensitivity [Not Recovered/Not Resolved]

NARRATIVE: CASE EVENT DATE: 20201201
